FAERS Safety Report 13853887 (Version 3)
Quarter: 2017Q4

REPORT INFORMATION
  Report Type: Report from Study
  Country: CA (occurrence: CA)
  Receive Date: 20170810
  Receipt Date: 20171027
  Transmission Date: 20180320
  Serious: Yes (Hospitalization, Other)
  Sender: FDA-Public Use
  Company Number: CA-ELI_LILLY_AND_COMPANY-CA201707006770

PATIENT
  Age: 47 Year
  Sex: Male

DRUGS (1)
  1. IXEKIZUMAB [Suspect]
     Active Substance: IXEKIZUMAB
     Indication: PRODUCT USED FOR UNKNOWN INDICATION
     Dosage: 80 MG, UNKNOWN
     Route: 058
     Dates: start: 20170428, end: 20170925

REACTIONS (9)
  - Groin abscess [Recovering/Resolving]
  - Tinea pedis [Recovering/Resolving]
  - Furuncle [Not Recovered/Not Resolved]
  - Cellulitis [Not Recovered/Not Resolved]
  - Tonsillitis [Not Recovered/Not Resolved]
  - Fungal infection [Recovering/Resolving]
  - Tinea cruris [Recovering/Resolving]
  - Fungal infection [Recovered/Resolved]
  - Pyrexia [Unknown]

NARRATIVE: CASE EVENT DATE: 20170629
